FAERS Safety Report 7808899-3 (Version None)
Quarter: 2011Q4

REPORT INFORMATION
  Report Type: 
  Country: None (occurrence: None)
  Receive Date: 20111012
  Receipt Date: 20111012
  Transmission Date: 20120403
  Serious: Yes (Hospitalization, Other)
  Sender: FDA-Public Use
  Company Number: PHHO2008US06241

PATIENT
  Sex: Female
  Weight: 97 kg

DRUGS (11)
  1. GILENYA [Suspect]
     Indication: MULTIPLE SCLEROSIS
     Dosage: 0.5 MG, UNK
     Route: 048
     Dates: start: 20070517, end: 20080513
  2. ALPRAZOLAM [Concomitant]
     Indication: DEPRESSION
  3. SOLU-MEDROL [Suspect]
     Indication: MULTIPLE SCLEROSIS RELAPSE
     Dosage: UNK, UNK
     Route: 042
     Dates: start: 20080512, end: 20080513
  4. GILENYA [Suspect]
     Dosage: UNK
     Dates: start: 20080517
  5. LISINOPRIL AND HYDROCHLOROTHIAZIDE [Concomitant]
     Indication: HYPERTENSION
  6. VOLTAREN [Concomitant]
     Indication: PAIN IN EXTREMITY
  7. GILENYA [Suspect]
     Dosage: 0.5 MG, UNK
     Dates: start: 20080514, end: 20080516
  8. ESTRADIOL [Concomitant]
     Indication: HYSTERECTOMY
  9. PROVIGIL [Concomitant]
     Indication: FATIGUE
  10. CHANTIX [Concomitant]
  11. AFRIN [Concomitant]
     Indication: SEASONAL ALLERGY

REACTIONS (44)
  - VISUAL IMPAIRMENT [None]
  - HYPOTENSION [None]
  - AGITATION [None]
  - ATAXIA [None]
  - DYSARTHRIA [None]
  - URINARY RETENTION [None]
  - MITRAL VALVE INCOMPETENCE [None]
  - DYSPNOEA [None]
  - EXTENSOR PLANTAR RESPONSE [None]
  - BLADDER CATHETERISATION [None]
  - STRESS [None]
  - FALL [None]
  - ATRIAL FIBRILLATION [None]
  - INAPPROPRIATE ANTIDIURETIC HORMONE SECRETION [None]
  - PARAESTHESIA [None]
  - DYSURIA [None]
  - HYPOAESTHESIA [None]
  - MICTURITION URGENCY [None]
  - FATIGUE [None]
  - OEDEMA PERIPHERAL [None]
  - MULTIPLE SCLEROSIS RELAPSE [None]
  - HYPERREFLEXIA [None]
  - SENSORY DISTURBANCE [None]
  - INSOMNIA [None]
  - COGNITIVE DISORDER [None]
  - FRUSTRATION [None]
  - CARDIOVERSION [None]
  - BLOOD GLUCOSE ABNORMAL [None]
  - BALANCE DISORDER [None]
  - MUSCLE SPASMS [None]
  - MUSCLE SPASTICITY [None]
  - ANXIETY [None]
  - TRICUSPID VALVE INCOMPETENCE [None]
  - MUSCULAR WEAKNESS [None]
  - COORDINATION ABNORMAL [None]
  - CHEST PAIN [None]
  - MOBILITY DECREASED [None]
  - NEURALGIA [None]
  - CHEST DISCOMFORT [None]
  - HEART RATE IRREGULAR [None]
  - SINUS HEADACHE [None]
  - GAIT DISTURBANCE [None]
  - HYPONATRAEMIA [None]
  - BRADYCARDIA [None]
